FAERS Safety Report 7132050-9 (Version None)
Quarter: 2010Q4

REPORT INFORMATION
  Report Type: 
  Country: None (occurrence: None)
  Receive Date: 20101202
  Receipt Date: 20101118
  Transmission Date: 20110411
  Serious: Yes (Hospitalization)
  Sender: FDA-Public Use
  Company Number: PHHY2010MX78621

PATIENT
  Sex: Female

DRUGS (2)
  1. DIOVAN [Suspect]
     Indication: HYPERTENSION
     Dosage: 320 MG, QD
     Route: 048
     Dates: start: 20010101
  2. DIOVAN [Suspect]
     Dosage: 160 MG, QD
     Dates: start: 20050101

REACTIONS (2)
  - CYST REMOVAL [None]
  - NECK MASS [None]
